FAERS Safety Report 5231153-3 (Version None)
Quarter: 2007Q1

REPORT INFORMATION
  Report Type: 
  Country: None (occurrence: None)
  Receive Date: 20070206
  Receipt Date: 20070126
  Transmission Date: 20070707
  Serious: Yes (Death)
  Sender: FDA-Public Use
  Company Number: BG-ROCHE-432428

PATIENT
  Age: 25 Year
  Sex: Male
  Weight: 104 kg

DRUGS (3)
  1. CAPECITABINE [Suspect]
     Route: 048
     Dates: start: 20060111
  2. BEVACIZUMAB [Suspect]
     Route: 042
     Dates: start: 20060111
  3. OXALIPLATIN [Suspect]
     Route: 042
     Dates: start: 20060111

REACTIONS (1)
  - RESPIRATORY FAILURE [None]
